FAERS Safety Report 6917772-4 (Version None)
Quarter: 2010Q3

REPORT INFORMATION
  Report Type: 
  Country: None (occurrence: None)
  Receive Date: 20100810
  Receipt Date: 20100729
  Transmission Date: 20110219
  Serious: Yes (Hospitalization)
  Sender: FDA-Public Use
  Company Number: FR-PFIZER INC-2010095230

PATIENT
  Age: 61 Year
  Sex: Male

DRUGS (8)
  1. SALAZOPYRINE [Suspect]
     Dosage: 500 MG, 6X/DAY
     Route: 048
     Dates: start: 20100401, end: 20100505
  2. METOJECT [Suspect]
     Dosage: 20 MG, MONTHLY
     Dates: start: 20100428, end: 20100505
  3. SKENAN [Concomitant]
     Dosage: 30 MG, 2X/DAY
  4. CORTANCYL [Concomitant]
     Dosage: UNK
  5. PARACETAMOL [Concomitant]
     Dosage: 1 G, 4X/DAY
  6. SPECIAFOLDINE [Concomitant]
     Dosage: 2 DAILY DOSES
  7. OMEPRAZOLE [Concomitant]
     Dosage: 20 MG PER DAY
  8. LOVENOX [Concomitant]
     Dosage: 0.4 ML, 1X/DAY

REACTIONS (1)
  - PANCYTOPENIA [None]
